FAERS Safety Report 21874227 (Version 1)
Quarter: 2023Q1

REPORT INFORMATION
  Report Type: Other
  Country: None (occurrence: JP)
  Receive Date: 20230117
  Receipt Date: 20230117
  Transmission Date: 20230417
  Serious: Yes (Hospitalization)
  Sender: FDA-Public Use
  Company Number: JP-B.Braun Medical Inc.-2136797

PATIENT
  Age: 89 Year

DRUGS (1)
  1. HEPARIN SODIUM IN SODIUM CHLORIDE [Suspect]
     Active Substance: HEPARIN SODIUM

REACTIONS (5)
  - Off label use [Recovered/Resolved]
  - Haemorrhage subcutaneous [Recovered/Resolved]
  - Post procedural haemorrhage [Recovered/Resolved]
  - Seroma [Recovered/Resolved]
  - Extravasation [Recovered/Resolved]
